FAERS Safety Report 23436407 (Version 1)
Quarter: 2024Q1

REPORT INFORMATION
  Report Type: Report from Study
  Country: GB (occurrence: GB)
  Receive Date: 20240124
  Receipt Date: 20240124
  Transmission Date: 20240410
  Serious: Yes (Other)
  Sender: FDA-Public Use
  Company Number: GB-BAXTER-2024BAX010771

PATIENT
  Age: 42 Year
  Sex: Female
  Weight: 48.7 kg

DRUGS (5)
  1. AMINO ACIDS\DEXTROSE\ELECTROLYTES NOS\SOYBEAN OIL [Suspect]
     Active Substance: AMINO ACIDS\DEXTROSE\ELECTROLYTES NOS\SOYBEAN OIL
     Indication: Parenteral nutrition
     Dosage: 2000 ML BAG UNSPECIFIED DOSE AND FREQUENCY (6 NIGHT - 4 NIGHTS SUPPLEMENTED TRIOMEL)
     Route: 065
     Dates: start: 20240114
  2. CERNEVIT [Suspect]
     Active Substance: VITAMINS
     Indication: Parenteral nutrition
     Dosage: UNSPECIFIED DOSE AND FREQUENCY  (6 NIGHT - 4 NIGHTS SUPPLEMENTED TRIOMEL)
     Route: 065
     Dates: start: 20240114
  3. IRON\MINERALS\POTASSIUM IOD\SODIUM FLUORIDE\SODIUM MOLYBDATE\SODIUM SE [Suspect]
     Active Substance: IRON\MINERALS\POTASSIUM IOD\SODIUM FLUORIDE\SODIUM MOLYBDATE\SODIUM SELENITE\ZINC
     Indication: Parenteral nutrition
     Dosage: UNSPECIFIED DOSE AND FREQUENCY  (6 NIGHT - 4 NIGHTS SUPPLEMENTED TRIOMEL) (MANUFACTURER: LABORATOIRE
     Route: 065
     Dates: start: 20240114
  4. ASCORBIC ACID [Suspect]
     Active Substance: ASCORBIC ACID
     Indication: Parenteral nutrition
     Dosage: 100 MG/ML- FLAC., UNSPECIFIED DOSE AND FREQUENCY  (6 NIGHT - 4 NIGHTS SUPPLEMENTED TRIOMEL)
     Route: 065
     Dates: start: 20240114
  5. UNSPECIFIED INGREDIENT [Suspect]
     Active Substance: UNSPECIFIED INGREDIENT
     Route: 065

REACTIONS (2)
  - Cardiac flutter [Recovered/Resolved]
  - Palpitations [Recovered/Resolved]

NARRATIVE: CASE EVENT DATE: 20240114
